FAERS Safety Report 8610488-8 (Version None)
Quarter: 2012Q3

REPORT INFORMATION
  Report Type: 
  Country: None (occurrence: None)
  Receive Date: 20120822
  Receipt Date: 20120820
  Transmission Date: 20120928
  Serious: No
  Sender: FDA-Public Use
  Company Number: US-PFIZER INC-2012204620

PATIENT
  Age: 47 Year
  Sex: Female
  Weight: 66.213 kg

DRUGS (5)
  1. ZETIA [Concomitant]
     Dosage: UNK
  2. SINGULAIR [Concomitant]
     Dosage: UNK
  3. FLUTICASONE PROPIONATE/SALMETEROL [Concomitant]
     Dosage: UNK
  4. CHANTIX [Suspect]
     Indication: SMOKING CESSATION THERAPY
     Dosage: UNK
     Dates: start: 20090101
  5. METFORMIN [Concomitant]
     Dosage: UNK

REACTIONS (2)
  - FEELING JITTERY [None]
  - INSOMNIA [None]
